FAERS Safety Report 15533659 (Version 1)
Quarter: 2018Q4

REPORT INFORMATION
  Report Type: Spontaneous
  Country: ES (occurrence: ES)
  Receive Date: 20181019
  Receipt Date: 20181019
  Transmission Date: 20190205
  Serious: Yes (Other)
  Sender: FDA-Public Use
  Company Number: ES-PFIZER INC-2018410121

PATIENT
  Age: 29 Year
  Sex: Female

DRUGS (13)
  1. METHOTREXATE SODIUM. [Suspect]
     Active Substance: METHOTREXATE SODIUM
     Dosage: 15 MG, CYCLIC (CMED) (DAY 1)
     Route: 037
  2. VINCRISTINE SULFATE. [Suspect]
     Active Substance: VINCRISTINE SULFATE
     Dosage: 1.4 MG/M2, CYCLIC (HOAP-BLEO) (DAYS 1 AND 8)
     Route: 042
  3. HYDROCORTISONE. [Concomitant]
     Active Substance: HYDROCORTISONE
     Dosage: 100 MG, CYCLIC (DAY 1)
     Route: 037
  4. METHOTREXATE SODIUM. [Suspect]
     Active Substance: METHOTREXATE SODIUM
     Indication: BURKITT^S LYMPHOMA
     Dosage: 15 MG, CYCLIC (M-COAP) (DAY 3)
     Route: 037
  5. HYDROCORTISONE. [Concomitant]
     Active Substance: HYDROCORTISONE
     Indication: BURKITT^S LYMPHOMA
     Dosage: 100 MG, CYCLIC (THIRD DAY OF THE FIRST CYCLE)
     Route: 037
  6. METHOTREXATE SODIUM. [Suspect]
     Active Substance: METHOTREXATE SODIUM
     Dosage: UNK, CYCLIC (M-COAP) (1 G/M2 DAY 3)
     Route: 042
  7. CYTARABINE. [Suspect]
     Active Substance: CYTARABINE
     Dosage: 20 MG/M2, UNK (HOAP-BLEO)  (EVERY 8 HOURS, DAYS 1 TO 5)
     Route: 058
  8. CYTARABINE. [Suspect]
     Active Substance: CYTARABINE
     Dosage: 100 MG, CYCLIC (HOAP-BLEO) (DAY 1)
     Route: 037
  9. HYDROCORTISONE. [Concomitant]
     Active Substance: HYDROCORTISONE
     Dosage: 100 MG, CYCLIC (DAY 1)
     Route: 037
  10. METHOTREXATE SODIUM. [Suspect]
     Active Substance: METHOTREXATE SODIUM
     Dosage: 1 UNK, CYCLIC (CMED) (1 G/M2 DAY 1)
     Route: 042
  11. VINCRISTINE SULFATE. [Suspect]
     Active Substance: VINCRISTINE SULFATE
     Indication: BURKITT^S LYMPHOMA
     Dosage: 1.4 MG/M2, CYCLIC (M-COAP) (DAYS 1 AND 8)
     Route: 042
  12. IMIPENEM [Concomitant]
     Active Substance: IMIPENEM
     Dosage: 500 MG, UNK (EVERY 6 HOURS)
     Route: 042
  13. CYTARABINE. [Suspect]
     Active Substance: CYTARABINE
     Indication: BURKITT^S LYMPHOMA
     Dosage: 500 MG/M2, CYCLIC (M-COAP) (DAY 2)
     Route: 042

REACTIONS (3)
  - Blindness transient [Unknown]
  - Tumour lysis syndrome [Unknown]
  - Neurotoxicity [Unknown]
